FAERS Safety Report 13687971 (Version 2)
Quarter: 2019Q1

REPORT INFORMATION
  Report Type: Spontaneous
  Country: US (occurrence: US)
  Receive Date: 20170626
  Receipt Date: 20190123
  Transmission Date: 20190417
  Serious: Yes (Other)
  Sender: FDA-Public Use
  Company Number: US-BEH-2017081538

PATIENT
  Sex: Female
  Weight: 64.4 kg

DRUGS (4)
  1. BERINERT [Suspect]
     Active Substance: HUMAN C1-ESTERASE INHIBITOR
     Indication: PROPHYLAXIS
     Dosage: UNK
     Route: 042
  2. BERINERT [Suspect]
     Active Substance: HUMAN C1-ESTERASE INHIBITOR
     Indication: HEREDITARY ANGIOEDEMA
     Dosage: 1000 IU, EVERY 3-4 DAYS
     Route: 042
     Dates: start: 20160104
  3. XARELTO [Concomitant]
     Active Substance: RIVAROXABAN
  4. MELATONIN [Concomitant]
     Active Substance: MELATONIN

REACTIONS (6)
  - Pyrexia [Unknown]
  - Pain [Unknown]
  - Wound secretion [Unknown]
  - Tendon injury [Unknown]
  - Hereditary angioedema [Unknown]
  - Hypoaesthesia [Unknown]

NARRATIVE: CASE EVENT DATE: 2017
